FAERS Safety Report 6625201-3 (Version None)
Quarter: 2010Q1

REPORT INFORMATION
  Report Type: 
  Country: None (occurrence: None)
  Receive Date: 20100310
  Receipt Date: 20090904
  Transmission Date: 20100710
  Serious: No
  Sender: FDA-Public Use
  Company Number: US-BIOGENIDEC-2009BI028692

PATIENT
  Age: 40 Year
  Sex: Female

DRUGS (3)
  1. AVONEX [Suspect]
     Route: 030
     Dates: start: 20000101
  2. AVONEX [Suspect]
     Route: 030
     Dates: start: 20090501
  3. TYSABRI [Concomitant]
     Indication: MULTIPLE SCLEROSIS
     Route: 042
     Dates: start: 20060101, end: 20090101

REACTIONS (5)
  - ANXIETY [None]
  - BALANCE DISORDER [None]
  - FEELING HOT [None]
  - GAIT DISTURBANCE [None]
  - STRESS [None]
